FAERS Safety Report 15291355 (Version 1)
Quarter: 2018Q3

REPORT INFORMATION
  Report Type: Spontaneous
  Country: GB (occurrence: GB)
  Receive Date: 20180817
  Receipt Date: 20180817
  Transmission Date: 20181010
  Serious: Yes (Other)
  Sender: FDA-Public Use
  Company Number: GB-TEVA-2018-GB-943025

PATIENT
  Age: 60 Year
  Sex: Female
  Weight: 84 kg

DRUGS (3)
  1. COCODAMOL [Suspect]
     Active Substance: ACETAMINOPHEN\CODEINE PHOSPHATE
     Indication: POSTOPERATIVE ANALGESIA
     Dosage: 2 DOSAGE FORMS DAILY; IN THE MORNING. 30/500
     Route: 048
     Dates: start: 20180716, end: 20180716
  2. NUROFEN [Concomitant]
     Active Substance: IBUPROFEN
     Route: 065
  3. NAPROXEN. [Concomitant]
     Active Substance: NAPROXEN
     Route: 065

REACTIONS (4)
  - Vomiting [Recovered/Resolved]
  - Dizziness [Recovering/Resolving]
  - Malaise [Unknown]
  - Nausea [Recovered/Resolved]

NARRATIVE: CASE EVENT DATE: 20180716
